FAERS Safety Report 6395334-8 (Version None)
Quarter: 2009Q4

REPORT INFORMATION
  Report Type: 
  Country: None (occurrence: None)
  Receive Date: 20091009
  Receipt Date: 20091007
  Transmission Date: 20100525
  Serious: Yes (Life-Threatening, Hospitalization)
  Sender: FDA-Public Use
  Company Number: B0596695A

PATIENT
  Sex: Female

DRUGS (5)
  1. PAXIL [Suspect]
     Indication: DRUG USE FOR UNKNOWN INDICATION
     Dosage: 20MG PER DAY
     Route: 048
  2. NORTRIPTYLINE HCL [Suspect]
     Indication: DRUG USE FOR UNKNOWN INDICATION
     Dosage: 25MG TWICE PER DAY
     Route: 048
  3. SEROQUEL [Concomitant]
     Dosage: 25MG PER DAY
     Route: 048
  4. ROHYPNOL [Concomitant]
     Dosage: 2MG PER DAY
     Route: 048
  5. LENDORMIN [Concomitant]
     Dosage: .5MG PER DAY
     Route: 048

REACTIONS (6)
  - ALTERED STATE OF CONSCIOUSNESS [None]
  - ARRHYTHMIA [None]
  - BLOOD PRESSURE DECREASED [None]
  - CONVULSION [None]
  - OVERDOSE [None]
  - RESPIRATORY DEPRESSION [None]
